FAERS Safety Report 19185388 (Version 1)
Quarter: 2021Q2

REPORT INFORMATION
  Report Type: Spontaneous
  Country: US (occurrence: US)
  Receive Date: 20210427
  Receipt Date: 20210427
  Transmission Date: 20210717
  Serious: Yes (Disabling, Other)
  Sender: FDA-Public Use
  Company Number: US-PURDUE-USA-2020-0198176

PATIENT
  Sex: Female

DRUGS (2)
  1. OXYCONTIN [Suspect]
     Active Substance: OXYCODONE HYDROCHLORIDE
     Indication: PRODUCT USED FOR UNKNOWN INDICATION
     Dosage: 80 MG, Q6H
     Route: 048
  2. OXYCONTIN [Suspect]
     Active Substance: OXYCODONE HYDROCHLORIDE
     Dosage: 10 MG, BID
     Route: 048

REACTIONS (8)
  - Condition aggravated [Unknown]
  - Anorgasmia [Unknown]
  - Physical disability [Unknown]
  - Therapeutic product effect decreased [Unknown]
  - Ageusia [Unknown]
  - Drug dependence [Unknown]
  - Bedridden [Unknown]
  - Dyspareunia [Unknown]
